APPROVED DRUG PRODUCT: RISPERIDONE
Active Ingredient: RISPERIDONE
Strength: 1MG
Dosage Form/Route: TABLET;ORAL
Application: A077860 | Product #003
Applicant: WATSON LABORATORIES INC
Approved: Dec 5, 2008 | RLD: No | RS: No | Type: DISCN